FAERS Safety Report 18279740 (Version 1)
Quarter: 2020Q3

REPORT INFORMATION
  Report Type: Spontaneous
  Country: US (occurrence: US)
  Receive Date: 20200918
  Receipt Date: 20200918
  Transmission Date: 20201103
  Serious: Yes (Disabling)
  Sender: FDA-Public Use
  Company Number: US-ALVOGEN-2020-ALVOGEN-114254

PATIENT
  Sex: Male

DRUGS (5)
  1. PERCOCET [Suspect]
     Active Substance: ACETAMINOPHEN\OXYCODONE HYDROCHLORIDE
     Indication: BACK INJURY
  2. MORPHINE [Suspect]
     Active Substance: MORPHINE
     Indication: BACK INJURY
  3. OXYCODONE [Suspect]
     Active Substance: OXYCODONE
     Indication: BACK INJURY
  4. HYDROCODONE BITARTRATE. [Suspect]
     Active Substance: HYDROCODONE BITARTRATE
     Indication: BACK INJURY
  5. TRAMADOL. [Suspect]
     Active Substance: TRAMADOL
     Indication: BACK INJURY

REACTIONS (6)
  - Sciatic nerve injury [Unknown]
  - Overdose [Unknown]
  - Fall [Unknown]
  - Disability [Unknown]
  - Pain [Unknown]
  - Disturbance in attention [Unknown]
